FAERS Safety Report 21454186 (Version 3)
Quarter: 2022Q4

REPORT INFORMATION
  Report Type: Spontaneous
  Country: US (occurrence: US)
  Receive Date: 20221013
  Receipt Date: 20221114
  Transmission Date: 20230113
  Serious: Yes (Other)
  Sender: FDA-Public Use
  Company Number: US-PFIZER INC-202201225274

PATIENT
  Age: 74 Year
  Sex: Female
  Weight: 72.109 kg

DRUGS (6)
  1. PAXLOVID [Suspect]
     Active Substance: NIRMATRELVIR\RITONAVIR
     Indication: COVID-19 treatment
     Dosage: UNK
     Route: 048
     Dates: start: 20221002, end: 20221007
  2. SYNTHROID [Concomitant]
     Active Substance: LEVOTHYROXINE SODIUM
     Dosage: UNK
  3. PRAVACHOL [Concomitant]
     Active Substance: PRAVASTATIN SODIUM
     Dosage: UNK
  4. PRILOSEC [Concomitant]
     Active Substance: OMEPRAZOLE MAGNESIUM
     Dosage: UNK
  5. ASPIRIN [Concomitant]
     Active Substance: ASPIRIN
     Dosage: 81 MG
  6. METOPROLOL [Concomitant]
     Active Substance: METOPROLOL
     Dosage: UNK

REACTIONS (5)
  - Arrhythmia [Unknown]
  - Condition aggravated [Unknown]
  - COVID-19 [Recovered/Resolved]
  - Disease recurrence [Recovered/Resolved]
  - Taste disorder [Unknown]

NARRATIVE: CASE EVENT DATE: 20221011
